FAERS Safety Report 6256023-3 (Version None)
Quarter: 2009Q2

REPORT INFORMATION
  Report Type: 
  Country: None (occurrence: None)
  Receive Date: 20090630
  Receipt Date: 20090630
  Transmission Date: 20091009
  Serious: No
  Sender: FDA-Public Use
  Company Number: None

PATIENT
  Age: 42 Year
  Sex: Female

DRUGS (1)
  1. OTRIVIN [Suspect]
     Dosage: NASAL
     Route: 045
     Dates: start: 20090201, end: 20090301

REACTIONS (2)
  - DRUG ABUSE [None]
  - INTENTIONAL DRUG MISUSE [None]
